FAERS Safety Report 21139862 (Version 1)
Quarter: 2022Q3

REPORT INFORMATION
  Report Type: Report from Study
  Country: US (occurrence: US)
  Receive Date: 20220728
  Receipt Date: 20220728
  Transmission Date: 20221027
  Serious: Yes (Death, Other)
  Sender: FDA-Public Use
  Company Number: US-ACADIA PHARMACEUTICALS INC.-ACA-2022-PIM-002455

PATIENT
  Age: 80 Year
  Sex: Female

DRUGS (10)
  1. NUPLAZID [Suspect]
     Active Substance: PIMAVANSERIN TARTRATE
     Indication: Parkinson^s disease
     Dosage: 34 MILLIGRAM, QD
     Route: 048
     Dates: start: 20181127, end: 20220712
  2. AMANTADINE [Concomitant]
     Active Substance: AMANTADINE
     Dosage: 100 MILLIGRAM
  3. ASPIRIN [Concomitant]
     Active Substance: ASPIRIN
     Dosage: 81 MILLIGRAM
  4. CIMETIDINE [Concomitant]
     Active Substance: CIMETIDINE
     Dosage: 400 MILLIGRAM
  5. CLONAZEPAM [Concomitant]
     Active Substance: CLONAZEPAM
     Dosage: 0.5 MG
  6. COMTAN [Concomitant]
     Active Substance: ENTACAPONE
     Dosage: 200 MILLIGRAM
  7. LISINOPRIL [Concomitant]
     Active Substance: LISINOPRIL
     Dosage: 10 MILLIGRAM
  8. PROBIOTICS NOS [Concomitant]
     Active Substance: PROBIOTICS NOS
  9. RYTARY [Concomitant]
     Active Substance: CARBIDOPA\LEVODOPA
     Dosage: 145 MILLIGRAM
  10. VITAMIN D3 [Concomitant]
     Active Substance: CHOLECALCIFEROL
     Dosage: 400 UNIT

REACTIONS (1)
  - Death [Fatal]

NARRATIVE: CASE EVENT DATE: 20220712
